FAERS Safety Report 21966162 (Version 1)
Quarter: 2023Q1

REPORT INFORMATION
  Report Type: Spontaneous
  Country: US (occurrence: US)
  Receive Date: 20230208
  Receipt Date: 20230208
  Transmission Date: 20230417
  Serious: Yes (Life-Threatening)
  Sender: FDA-Public Use
  Company Number: US-BRISTOL-MYERS SQUIBB COMPANY-2023-018125

PATIENT
  Age: 84 Year
  Sex: Female
  Weight: 85.5 kg

DRUGS (2)
  1. NIVOLUMAB [Suspect]
     Active Substance: NIVOLUMAB
     Indication: Angiosarcoma recurrent
     Dates: start: 20230103
  2. IPILIMUMAB [Suspect]
     Active Substance: IPILIMUMAB
     Indication: Angiosarcoma recurrent
     Dates: start: 20230103

REACTIONS (2)
  - Platelet count decreased [Not Recovered/Not Resolved]
  - Off label use [Unknown]

NARRATIVE: CASE EVENT DATE: 20230116
